FAERS Safety Report 19583156 (Version 1)
Quarter: 2021Q3

REPORT INFORMATION
  Report Type: Spontaneous
  Country: US (occurrence: US)
  Receive Date: 20210719
  Receipt Date: 20210719
  Transmission Date: 20211014
  Serious: Yes (Hospitalization, Other)
  Sender: FDA-Public Use
  Company Number: US-INSUD PHARMA-2107US00796

PATIENT

DRUGS (6)
  1. ESTRASORB [Suspect]
     Active Substance: ESTRADIOL HEMIHYDRATE
     Dosage: INCREASED TO 2 MILLIGRAM DAILY
     Route: 048
  2. LUMACAFTOR/IVACAFTOR VERTEX [Concomitant]
     Active Substance: IVACAFTOR\LUMACAFTOR
     Indication: CYSTIC FIBROSIS
  3. HISTRELIN ACETATE [Concomitant]
     Active Substance: HISTRELIN ACETATE
     Indication: TRANSGENDER HORMONAL THERAPY
     Dosage: IMPLANT
     Route: 058
  4. ESTRASORB [Suspect]
     Active Substance: ESTRADIOL HEMIHYDRATE
     Dosage: DECREASED TO 1 MG DAILY
  5. ESTRASORB [Suspect]
     Active Substance: ESTRADIOL HEMIHYDRATE
     Indication: TRANSGENDER HORMONAL THERAPY
     Dosage: 1 MILLIGRAM
     Route: 048
  6. SPIRONOLACTONE. [Concomitant]
     Active Substance: SPIRONOLACTONE
     Indication: TRANSGENDER HORMONAL THERAPY
     Dosage: 50 MILLIGRAM ? TITRATED UP TO 200 MG DAILY
     Route: 048

REACTIONS (2)
  - Infective pulmonary exacerbation of cystic fibrosis [Recovering/Resolving]
  - Pseudomonas infection [Unknown]
